FAERS Safety Report 13565895 (Version 11)
Quarter: 2020Q3

REPORT INFORMATION
  Report Type: Other
  Country: GB (occurrence: GB)
  Receive Date: 20170520
  Receipt Date: 20200826
  Transmission Date: 20201102
  Serious: Yes (Other)
  Sender: FDA-Public Use
  Company Number: GB-MACLEODS PHARMACEUTICALS US LTD-MAC2017005022

PATIENT

DRUGS (41)
  1. LYRICA [Suspect]
     Active Substance: PREGABALIN
     Indication: PRODUCT USED FOR UNKNOWN INDICATION
     Dosage: 150 MILLIGRAM, QD, 75 MG TWO TIMES DAILY
     Route: 065
  2. COCODAMOL [Suspect]
     Active Substance: ACETAMINOPHEN\CODEINE PHOSPHATE
     Dosage: 1 DOSAGE FORM, QD ( (30/500MG, 4*/DAY (QID )UNK
     Route: 048
  3. ASPIRIN. [Suspect]
     Active Substance: ASPIRIN
     Indication: PRODUCT USED FOR UNKNOWN INDICATION
     Dosage: 75 MILLIGRAM, QD, 1X/DAY
     Route: 065
  4. SALBUTAMOL [Suspect]
     Active Substance: ALBUTEROL
     Dosage: UNK
  5. FABRAZYME [Suspect]
     Active Substance: AGALSIDASE BETA
     Indication: PRODUCT USED FOR UNKNOWN INDICATION
     Dosage: 50 MILLIGRAM, ONCE IN 2 WEEK
     Route: 041
     Dates: end: 20170420
  6. FABRAZYME [Suspect]
     Active Substance: AGALSIDASE BETA
     Dosage: 50 MILLIGRAM, 2 WEEK, 50MG (QOW)
     Route: 041
     Dates: start: 20170420
  7. FABRAZYME [Suspect]
     Active Substance: AGALSIDASE BETA
     Dosage: 50 MILLIGRAM, (QOD), FORTNIGHTLY
  8. FABRAZYME [Suspect]
     Active Substance: AGALSIDASE BETA
     Dosage: 50 MG, EV 2 WEEKS (QOW) 50MG (GIVEN AS 35MG + 15MG), FORTNIGHTLY, 35MG ? C578H24
     Route: 041
  9. FABRAZYME [Suspect]
     Active Substance: AGALSIDASE BETA
     Dosage: UNK
     Route: 041
  10. FABRAZYME [Suspect]
     Active Substance: AGALSIDASE BETA
     Dosage: 50 MG 2 WEEKS (GIVEN AS 35MG + 15MG), FORTNIGHTLY, 35MG ? C578H24
     Route: 041
  11. FULTIUM?D3 [Suspect]
     Active Substance: CHOLECALCIFEROL
     Indication: PRODUCT USED FOR UNKNOWN INDICATION
     Dosage: 800 IU, QD
     Route: 065
  12. CODEINE [Suspect]
     Active Substance: CODEINE
     Indication: PRODUCT USED FOR UNKNOWN INDICATION
     Dosage: 16 DOSAGE FORM, QD, 4X/DAY
     Route: 048
  13. LANSOPRAZOLE 30 MG [Suspect]
     Active Substance: LANSOPRAZOLE
     Indication: PRODUCT USED FOR UNKNOWN INDICATION
     Dosage: 30 MILLIGRAM, QD
     Route: 048
  14. FABRAZYME [Suspect]
     Active Substance: AGALSIDASE BETA
     Dosage: 50 MG, EVERY 2 WEEK (FORTNIGHTLY) AT A DOSE OF 50MG
     Route: 041
     Dates: start: 20170206
  15. FABRAZYME [Suspect]
     Active Substance: AGALSIDASE BETA
     Dosage: UNK
     Route: 041
     Dates: start: 20170220
  16. FABRAZYME [Suspect]
     Active Substance: AGALSIDASE BETA
     Dosage: UNK
     Route: 041
     Dates: start: 20170320
  17. FABRAZYME [Suspect]
     Active Substance: AGALSIDASE BETA
     Dosage: UNK
     Route: 041
     Dates: start: 20171129
  18. FABRAZYME [Suspect]
     Active Substance: AGALSIDASE BETA
     Dosage: UNK
     Route: 041
     Dates: start: 20170404
  19. PERINDOPRIL [Suspect]
     Active Substance: PERINDOPRIL
     Indication: PRODUCT USED FOR UNKNOWN INDICATION
     Dosage: 4 MILLIGRAM, QD, 1X/DAY
     Route: 048
  20. SALBUTAMOL [Suspect]
     Active Substance: ALBUTEROL
     Indication: COUGH
     Dosage: 2 DF, QD, 1/DAY, (2 PUFF ONCE DAILY)
     Route: 055
  21. SALBUTAMOL [Suspect]
     Active Substance: ALBUTEROL
     Dosage: UNK, EVERY 2 PUFF
     Route: 055
  22. FABRAZYME [Suspect]
     Active Substance: AGALSIDASE BETA
     Dosage: 50 MILLIGRAM
     Route: 041
  23. FABRAZYME [Suspect]
     Active Substance: AGALSIDASE BETA
     Dosage: UNK
     Route: 041
     Dates: start: 20170206
  24. FABRAZYME [Suspect]
     Active Substance: AGALSIDASE BETA
     Dosage: 50 MILLIGRAM, 2 WEEK, 50 MG,QOW
     Route: 041
     Dates: start: 20170206
  25. CLOPIDOGREL [Suspect]
     Active Substance: CLOPIDOGREL BISULFATE
     Indication: PRODUCT USED FOR UNKNOWN INDICATION
     Dosage: 75 MILLIGRAM, QD, 1X/DAY
     Route: 048
  26. SALBUTAMOL [Suspect]
     Active Substance: ALBUTEROL
     Indication: PRODUCT USED FOR UNKNOWN INDICATION
     Dosage: 2 DOSAGE FORM, 2 PUFFS, UNK
     Route: 055
  27. AMIODARONE [Suspect]
     Active Substance: AMIODARONE
     Indication: PRODUCT USED FOR UNKNOWN INDICATION
     Dosage: 200 MILLIGRAM, QD, 1X/DAY
     Route: 065
  28. CITALOPRAM [Suspect]
     Active Substance: CITALOPRAM HYDROBROMIDE
     Indication: PRODUCT USED FOR UNKNOWN INDICATION
     Dosage: 10 MILLIGRAM, QD
     Route: 048
  29. COLECALCIFEROL [Suspect]
     Active Substance: CHOLECALCIFEROL
     Indication: PRODUCT USED FOR UNKNOWN INDICATION
     Dosage: 800 UNIT, QD, FULTIUM?D3
     Route: 048
  30. CODEINE [Suspect]
     Active Substance: CODEINE
     Dosage: 4 DF, QD (4X/DAY (QID))
     Route: 048
  31. COCODAMOL [Suspect]
     Active Substance: ACETAMINOPHEN\CODEINE PHOSPHATE
     Indication: PRODUCT USED FOR UNKNOWN INDICATION
     Dosage: 4 DOSAGE FORM, QD, 30/500 MG, 4X/DAY
     Route: 065
  32. COLECALCIFEROL [Suspect]
     Active Substance: CHOLECALCIFEROL
     Dosage: 800 INTERNATIONAL UNIT, QD
     Route: 048
  33. NEBIVOLOL 2.5 MG TABLET [Suspect]
     Active Substance: NEBIVOLOL
     Indication: BLOOD PRESSURE ABNORMAL
     Dosage: 2.5 MILLIGRAM, QD, 1X/DAY
     Route: 048
  34. FABRAZYME [Suspect]
     Active Substance: AGALSIDASE BETA
     Dosage: 50 MILLIGRAM, 50 MG, FOR 2 WEEKS
     Route: 041
  35. FABRAZYME [Suspect]
     Active Substance: AGALSIDASE BETA
     Dosage: 50 MILLIGRAM, QD, FOR INFUSION
     Route: 041
  36. FABRAZYME [Suspect]
     Active Substance: AGALSIDASE BETA
     Dosage: UNK
     Route: 041
     Dates: start: 20171213
  37. NEBIVOLOL 2.5 MG TABLET [Suspect]
     Active Substance: NEBIVOLOL
     Indication: PRODUCT USED FOR UNKNOWN INDICATION
  38. SALBUTAMOL [Suspect]
     Active Substance: ALBUTEROL
     Dosage: UNK
  39. FABRAZYME [Suspect]
     Active Substance: AGALSIDASE BETA
     Dosage: UNK
     Route: 041
  40. FABRAZYME [Suspect]
     Active Substance: AGALSIDASE BETA
     Dosage: 50 MILLIGRAM, QD
     Route: 041
  41. FABRAZYME [Suspect]
     Active Substance: AGALSIDASE BETA
     Dosage: UNK
     Route: 041
     Dates: end: 20170420

REACTIONS (4)
  - Wheezing [Unknown]
  - Productive cough [Recovered/Resolved]
  - Cough [Recovered/Resolved]
  - Lower respiratory tract infection [Unknown]
